FAERS Safety Report 6275157-0 (Version None)
Quarter: 2009Q3

REPORT INFORMATION
  Report Type: 
  Country: None (occurrence: None)
  Receive Date: 20090721
  Receipt Date: 20090518
  Transmission Date: 20100115
  Serious: Yes (Other)
  Sender: FDA-Public Use
  Company Number: US-PFIZER INC-2008097748

PATIENT
  Sex: Female
  Weight: 45.454 kg

DRUGS (4)
  1. DETROL LA [Suspect]
     Indication: URINARY INCONTINENCE
     Dates: start: 20080701
  2. ATENOLOL [Concomitant]
  3. AMLODIPINE [Concomitant]
  4. ARICEPT [Concomitant]

REACTIONS (4)
  - CATHETER PLACEMENT [None]
  - CATHETER RELATED COMPLICATION [None]
  - DEMENTIA [None]
  - PARKINSON'S DISEASE [None]
